FAERS Safety Report 13163927 (Version 1)
Quarter: 2017Q1

REPORT INFORMATION
  Report Type: Spontaneous
  Country: GB (occurrence: GB)
  Receive Date: 20170130
  Receipt Date: 20170130
  Transmission Date: 20170428
  Serious: Yes (Life-Threatening)
  Sender: FDA-Public Use
  Company Number: GB-TEVA-733518ACC

PATIENT
  Sex: Female
  Weight: 90 kg

DRUGS (6)
  1. BETAHISTINE [Concomitant]
     Active Substance: BETAHISTINE
     Dosage: MEDICINE TAKEN UNCHANGED FOR MORE THAN 5 YEARS.
  2. WARFARIN SODIUM. [Suspect]
     Active Substance: WARFARIN SODIUM
     Indication: ANTIPHOSPHOLIPID SYNDROME
     Dosage: 8MG MONDAYS AND FRIDAYS, 9MG ON OTHER DAYS (8.71MG/DAY).
     Route: 048
     Dates: start: 19960610
  3. ADCAL [Concomitant]
     Active Substance: CALCIUM CARBONATE
     Dosage: 2 DOSAGE FORMS DAILY;
  4. ATORVASTATIN [Concomitant]
     Active Substance: ATORVASTATIN
  5. DOXYCYCLINE. [Suspect]
     Active Substance: DOXYCYCLINE
     Indication: LOWER RESPIRATORY TRACT INFECTION
     Dosage: 200MG INITIALLY THEN 1 ONCE A DAY.
     Route: 048
     Dates: start: 20170109, end: 20170110
  6. METFORMIN [Concomitant]
     Active Substance: METFORMIN HYDROCHLORIDE

REACTIONS (1)
  - International normalised ratio increased [Recovering/Resolving]

NARRATIVE: CASE EVENT DATE: 20170110
